FAERS Safety Report 16709830 (Version 1)
Quarter: 2019Q3

REPORT INFORMATION
  Report Type: Spontaneous
  Country: CN (occurrence: CN)
  Receive Date: 20190816
  Receipt Date: 20190816
  Transmission Date: 20191004
  Serious: Yes (Other)
  Sender: FDA-Public Use
  Company Number: CN-SA-2019SA206037

PATIENT
  Sex: Male
  Weight: 55 kg

DRUGS (2)
  1. METFORMIN [Concomitant]
     Active Substance: METFORMIN HYDROCHLORIDE
     Indication: DIABETES MELLITUS
     Dosage: 0.5 G + 0.25 G + 0.25 G
     Route: 065
  2. LANTUS SOLOSTAR [Suspect]
     Active Substance: INSULIN GLARGINE
     Dosage: UNKNOWN
     Route: 065

REACTIONS (7)
  - Paralysis [Unknown]
  - Weight decreased [Unknown]
  - Visual impairment [Unknown]
  - Alopecia [Unknown]
  - Skin ulcer [Unknown]
  - Diabetes mellitus inadequate control [Unknown]
  - Speech disorder [Unknown]
